FAERS Safety Report 7057495-7 (Version None)
Quarter: 2010Q4

REPORT INFORMATION
  Report Type: 
  Country: None (occurrence: None)
  Receive Date: 20101022
  Receipt Date: 20101012
  Transmission Date: 20110411
  Serious: Yes (Hospitalization)
  Sender: FDA-Public Use
  Company Number: US-JNJFOC-20101003732

PATIENT
  Sex: Female
  Weight: 67.59 kg

DRUGS (2)
  1. REMICADE [Suspect]
     Indication: CROHN'S DISEASE
     Route: 042
  2. OTHER THERAPEUTIC PRODUCT UNSPECIFIED [Concomitant]

REACTIONS (10)
  - AMNESIA [None]
  - CLOSTRIDIAL INFECTION [None]
  - CORONARY ARTERIAL STENT INSERTION [None]
  - CROHN'S DISEASE [None]
  - DEHYDRATION [None]
  - NAUSEA [None]
  - OEDEMA PERIPHERAL [None]
  - PAIN IN EXTREMITY [None]
  - SECRETION DISCHARGE [None]
  - VOMITING [None]
